FAERS Safety Report 16413572 (Version 5)
Quarter: 2019Q3

REPORT INFORMATION
  Report Type: Report from Study
  Country: CA (occurrence: CA)
  Receive Date: 20190611
  Receipt Date: 20190910
  Transmission Date: 20191004
  Serious: Yes (Congenital Anomaly, Other)
  Sender: FDA-Public Use
  Company Number: CA-GLAXOSMITHKLINE-CA2019GSK101175

PATIENT
  Sex: Female
  Weight: 3.4 kg

DRUGS (4)
  1. MEPOLIZUMAB [Suspect]
     Active Substance: MEPOLIZUMAB
     Indication: NASAL POLYPS
     Dosage: 100 MG, CYC
     Route: 064
     Dates: start: 20180108, end: 20180403
  2. TRANDATE [Concomitant]
     Active Substance: LABETALOL HYDROCHLORIDE
     Indication: HYPERTENSION
     Dosage: 30 MG, UNK
     Route: 064
     Dates: start: 201805, end: 201805
  3. ADALAT [Concomitant]
     Active Substance: NIFEDIPINE
     Indication: HYPERTENSION
     Dosage: 10 MG, UNK
     Route: 064
     Dates: start: 201806
  4. ASA [Concomitant]
     Active Substance: ASPIRIN
     Indication: PATENT DUCTUS ARTERIOSUS
     Dosage: 650 MG, UNK
     Route: 064
     Dates: start: 201806, end: 201812

REACTIONS (3)
  - Pulmonary valve stenosis [Not Recovered/Not Resolved]
  - Haemoglobin decreased [Not Recovered/Not Resolved]
  - Cardiac murmur [Not Recovered/Not Resolved]

NARRATIVE: CASE EVENT DATE: 20190514
